FAERS Safety Report 9746002 (Version 1)
Quarter: 2013Q4

REPORT INFORMATION
  Report Type: Spontaneous
  Country: FR (occurrence: FR)
  Receive Date: 20131211
  Receipt Date: 20131211
  Transmission Date: 20140711
  Serious: Yes (Hospitalization)
  Sender: FDA-Public Use
  Company Number: FR-ASTRAZENECA-2013SE89063

PATIENT
  Age: 2 Month
  Sex: Female

DRUGS (1)
  1. EMLAPATCH [Suspect]
     Route: 062
     Dates: start: 20131010, end: 20131010

REACTIONS (5)
  - Lethargy [Recovered/Resolved]
  - Hypotonia [Recovering/Resolving]
  - Pallor [Recovered/Resolved]
  - Apnoea [Unknown]
  - Tachycardia [Recovered/Resolved]
